FAERS Safety Report 4389192-0 (Version None)
Quarter: 2004Q2

REPORT INFORMATION
  Report Type: 
  Country: None (occurrence: None)
  Receive Date: 20040630
  Receipt Date: 20040618
  Transmission Date: 20050107
  Serious: Yes (Hospitalization, Disabling)
  Sender: FDA-Public Use
  Company Number: 2004PK01074

PATIENT
  Age: 79 Year
  Sex: Male
  Weight: 70 kg

DRUGS (3)
  1. IRESSA [Suspect]
     Indication: PROSTATE CANCER METASTATIC
     Dosage: 250 MG DAILY PO
     Route: 048
     Dates: start: 20040511, end: 20040612
  2. DOCETAXEL [Suspect]
     Indication: PROSTATE CANCER METASTATIC
     Dosage: 70 MG/M2 WEEK IV
     Route: 042
     Dates: start: 20040511, end: 20040511
  3. DOCETAXEL [Suspect]
     Indication: PROSTATE CANCER METASTATIC
     Dosage: 70 MG/M2 WEEK IV
     Route: 042
     Dates: start: 20040609

REACTIONS (2)
  - BURSITIS [None]
  - ERYTHEMA [None]
